FAERS Safety Report 5324065-8 (Version None)
Quarter: 2007Q2

REPORT INFORMATION
  Report Type: 
  Country: None (occurrence: None)
  Receive Date: 20070507
  Receipt Date: 20070423
  Transmission Date: 20071010
  Serious: Yes (Hospitalization)
  Sender: FDA-Public Use
  Company Number: E2090-00232-SPO-JP

PATIENT
  Age: 46 Year
  Sex: Female

DRUGS (3)
  1. ZONISAMIDE [Suspect]
     Indication: CONVULSION PROPHYLAXIS
     Dosage: 200 MG, 1 IN 1 D, ORAL
     Route: 048
     Dates: start: 19990127, end: 20000310
  2. ADRENAL HORMONE PREPARATIONS (UNSPECIFIED) [Concomitant]
  3. ACYCLOVIR [Concomitant]

REACTIONS (10)
  - ALOPECIA [None]
  - AUTOIMMUNE DISORDER [None]
  - DRUG RASH WITH EOSINOPHILIA AND SYSTEMIC SYMPTOMS [None]
  - FATIGUE [None]
  - GRAFT VERSUS HOST DISEASE [None]
  - PANCYTOPENIA [None]
  - RAYNAUD'S PHENOMENON [None]
  - SCLERODERMA [None]
  - THYROID DISORDER [None]
  - VARICELLA [None]
